FAERS Safety Report 8267286-7 (Version None)
Quarter: 2012Q2

REPORT INFORMATION
  Report Type: 
  Country: None (occurrence: None)
  Receive Date: 20120405
  Receipt Date: 20120405
  Transmission Date: 20120825
  Serious: Yes (Other)
  Sender: FDA-Public Use
  Company Number: None

PATIENT
  Age: 67 Year
  Sex: Female

DRUGS (2)
  1. XELODA [Suspect]
     Dosage: 150 MG 1 TAB BID ORAL
     Route: 048
     Dates: start: 20111213, end: 20120402
  2. XELODA [Suspect]
     Indication: BREAST CANCER
     Dosage: 500 MG 3 TABS BID ORAL
     Route: 048
     Dates: start: 20111213, end: 20120402

REACTIONS (1)
  - PALMAR-PLANTAR ERYTHRODYSAESTHESIA SYNDROME [None]
